FAERS Safety Report 5397535-4 (Version None)
Quarter: 2007Q3

REPORT INFORMATION
  Report Type: 
  Country: None (occurrence: None)
  Receive Date: 20070726
  Receipt Date: 20070718
  Transmission Date: 20080115
  Serious: Yes (Other)
  Sender: FDA-Public Use
  Company Number: US-JNJFOC-20070704558

PATIENT
  Sex: Female
  Weight: 181.44 kg

DRUGS (8)
  1. FENTANYL TRANSDERMAL SYSTEM [Suspect]
     Indication: PAIN
     Route: 062
  2. NEURONTIN [Concomitant]
     Dosage: AT NOON
     Route: 048
  3. NEURONTIN [Concomitant]
     Indication: NEUROPATHY
     Dosage: 2 X 800 MG
     Route: 048
  4. PREVACID [Concomitant]
     Indication: DYSPEPSIA
     Route: 048
  5. POTASSIUM CHLORIDE [Concomitant]
     Indication: MUSCLE SPASMS
     Route: 048
  6. ZANAFLEX [Concomitant]
     Indication: NEUROPATHY
     Dosage: 2 X 4 MG
     Route: 048
  7. LYRICA [Concomitant]
     Indication: NEUROPATHY
     Route: 048
  8. DEMADEX [Concomitant]
     Indication: FLUID RETENTION
     Route: 048

REACTIONS (5)
  - BLOOD CHOLESTEROL INCREASED [None]
  - BLOOD GLUCOSE INCREASED [None]
  - DEPRESSION [None]
  - DRUG ADMINISTERED AT INAPPROPRIATE SITE [None]
  - MUSCLE SPASMS [None]
